FAERS Safety Report 19006286 (Version 4)
Quarter: 2021Q3

REPORT INFORMATION
  Report Type: Spontaneous
  Country: CA (occurrence: CA)
  Receive Date: 20210315
  Receipt Date: 20210906
  Transmission Date: 20211014
  Serious: Yes (Other)
  Sender: FDA-Public Use
  Company Number: CA-CELLTRION INC.-2019CA026379

PATIENT

DRUGS (24)
  1. INFLECTRA [Suspect]
     Active Substance: INFLIXIMAB-DYYB
     Dosage: 300 MG, THEN EVERY 8 WEEKS
     Route: 042
     Dates: start: 20200506, end: 20200506
  2. DIPHENHYDRAMINE. [Concomitant]
     Active Substance: DIPHENHYDRAMINE
     Dosage: 50 MG
     Route: 042
     Dates: start: 20200709, end: 20200709
  3. TYLENOL [Concomitant]
     Active Substance: ACETAMINOPHEN
     Indication: PREMEDICATION
     Dosage: 650 MG
     Route: 048
     Dates: start: 20200506, end: 20200506
  4. INFLECTRA [Suspect]
     Active Substance: INFLIXIMAB-DYYB
     Dosage: 300 MG, THEN EVERY 8 WEEKS
     Route: 042
     Dates: start: 20200827
  5. INFLECTRA [Suspect]
     Active Substance: INFLIXIMAB-DYYB
     Dosage: 300 MG, THEN EVERY 8 WEEKS
     Route: 042
     Dates: start: 20210226
  6. ACETAMINOPHEN. [Concomitant]
     Active Substance: ACETAMINOPHEN
     Indication: PREMEDICATION
     Dosage: 650 MG
     Route: 048
     Dates: start: 20200506, end: 20200506
  7. DIPHENHYDRAMINE. [Concomitant]
     Active Substance: DIPHENHYDRAMINE
     Indication: PREMEDICATION
     Dosage: 50 MG
     Route: 042
     Dates: start: 20200506, end: 20200506
  8. HYDROCORTISONE. [Concomitant]
     Active Substance: HYDROCORTISONE
     Indication: PREMEDICATION
     Dosage: 100 MG
     Route: 042
     Dates: start: 20200506, end: 20200506
  9. INFLECTRA [Suspect]
     Active Substance: INFLIXIMAB-DYYB
     Indication: CROHN^S DISEASE
     Dosage: 300 MG, THEN EVERY 8 WEEKS
     Route: 042
     Dates: start: 20200312
  10. INFLECTRA [Suspect]
     Active Substance: INFLIXIMAB-DYYB
     Dosage: 300 MG, THEN EVERY 8 WEEKS
     Route: 042
     Dates: start: 20200506, end: 20200506
  11. INFLECTRA [Suspect]
     Active Substance: INFLIXIMAB-DYYB
     Dosage: 300 MG, THEN EVERY 8 WEEKS
     Route: 042
     Dates: start: 20200606, end: 20200606
  12. INFLECTRA [Suspect]
     Active Substance: INFLIXIMAB-DYYB
     Dosage: 300 MG, THEN EVERY 8 WEEKS
     Route: 042
     Dates: start: 20201215
  13. ACETAMINOPHEN. [Concomitant]
     Active Substance: ACETAMINOPHEN
     Dosage: 650 MG
     Route: 048
     Dates: start: 20200709, end: 20200709
  14. ACETAMINOPHEN. [Concomitant]
     Active Substance: ACETAMINOPHEN
     Dosage: 650 MG
     Route: 048
     Dates: start: 20200827, end: 20200827
  15. DIPHENHYDRAMINE. [Concomitant]
     Active Substance: DIPHENHYDRAMINE
     Dosage: 50 MG
     Route: 042
     Dates: start: 20200827, end: 20200827
  16. INFLECTRA [Suspect]
     Active Substance: INFLIXIMAB-DYYB
     Dosage: 300 MG, THEN EVERY 8 WEEKS
     Route: 042
     Dates: start: 20200606, end: 20200606
  17. INFLECTRA [Suspect]
     Active Substance: INFLIXIMAB-DYYB
     Dosage: 300 MG, THEN EVERY 8 WEEKS
     Route: 042
     Dates: start: 20200709
  18. BENADRYL [Concomitant]
     Active Substance: DIPHENHYDRAMINE HYDROCHLORIDE
     Indication: PREMEDICATION
     Dosage: 50 MG
     Route: 042
     Dates: start: 20200506, end: 20200506
  19. DIPHENHYDRAMINE. [Concomitant]
     Active Substance: DIPHENHYDRAMINE
     Dosage: 50 MG
     Route: 042
     Dates: start: 20200506, end: 20200506
  20. HYDROCORTISONE. [Concomitant]
     Active Substance: HYDROCORTISONE
     Dosage: 100 MG
     Route: 042
     Dates: start: 20200827, end: 20200827
  21. INFLECTRA [Suspect]
     Active Substance: INFLIXIMAB-DYYB
     Dosage: 300 MG, THEN EVERY 8 WEEKS
     Route: 042
     Dates: start: 20201022
  22. INFLECTRA [Suspect]
     Active Substance: INFLIXIMAB-DYYB
     Dosage: 300 MG, THEN EVERY 8 WEEKS
     Route: 042
     Dates: start: 20210430
  23. INFLECTRA [Suspect]
     Active Substance: INFLIXIMAB-DYYB
     Dosage: 300 MG, THEN EVERY 8 WEEKS
     Route: 042
     Dates: start: 20210825
  24. HYDROCORTISONE. [Concomitant]
     Active Substance: HYDROCORTISONE
     Dosage: 100 MG
     Route: 042
     Dates: start: 20200709, end: 20200709

REACTIONS (17)
  - Stress [Not Recovered/Not Resolved]
  - Off label use [Unknown]
  - Intentional product use issue [Unknown]
  - Weight increased [Unknown]
  - Condition aggravated [Not Recovered/Not Resolved]
  - Blood pressure increased [Unknown]
  - Blood calcium decreased [Unknown]
  - Arthralgia [Unknown]
  - Infusion site discolouration [Unknown]
  - Malaise [Unknown]
  - Infusion site pain [Unknown]
  - Inappropriate schedule of product administration [Unknown]
  - Presyncope [Unknown]
  - Fracture [Unknown]
  - Anxiety [Not Recovered/Not Resolved]
  - Body temperature decreased [Unknown]
  - Nervousness [Unknown]

NARRATIVE: CASE EVENT DATE: 2020
